FAERS Safety Report 6771350-9 (Version None)
Quarter: 2010Q2

REPORT INFORMATION
  Report Type: 
  Country: None (occurrence: None)
  Receive Date: 20100616
  Receipt Date: 20100610
  Transmission Date: 20101027
  Serious: Yes (Hospitalization)
  Sender: FDA-Public Use
  Company Number: FR-BRISTOL-MYERS SQUIBB COMPANY-15142649

PATIENT
  Age: 45 Year
  Sex: Female

DRUGS (3)
  1. REYATAZ [Suspect]
     Route: 048
     Dates: start: 20050501, end: 20100601
  2. TRUVADA [Suspect]
     Dosage: 1 DF = 1 TABLET
     Dates: start: 20050501
  3. NORVIR [Suspect]
     Dates: start: 20050501

REACTIONS (1)
  - RENAL COLIC [None]
